FAERS Safety Report 5901485-1 (Version None)
Quarter: 2008Q3

REPORT INFORMATION
  Report Type: 
  Country: None (occurrence: None)
  Receive Date: 20080929
  Receipt Date: 20080808
  Transmission Date: 20090109
  Serious: No
  Sender: FDA-Public Use
  Company Number: US-BAYER-200830893NA

PATIENT
  Age: 48 Year
  Sex: Female
  Weight: 68 kg

DRUGS (1)
  1. MIRENA [Suspect]
     Indication: CONTRACEPTION
     Route: 015
     Dates: start: 20070901

REACTIONS (5)
  - ABDOMINAL PAIN [None]
  - BLOOD URINE PRESENT [None]
  - MENORRHAGIA [None]
  - PROCEDURAL PAIN [None]
  - WEIGHT INCREASED [None]
